FAERS Safety Report 25629703 (Version 1)
Quarter: 2025Q3

REPORT INFORMATION
  Report Type: Spontaneous
  Country: US (occurrence: US)
  Receive Date: 20250731
  Receipt Date: 20250731
  Transmission Date: 20251020
  Serious: Yes (unspecified)
  Sender: BRECKENRIDGE PHARMACEUTICAL, INC.
  Company Number: US-Breckenridge Pharmaceutical, Inc.-2181622

PATIENT
  Age: 81 Year
  Sex: Female
  Weight: 54.545 kg

DRUGS (2)
  1. RIVASTIGMINE TRANSDERMAL SYSTEM [Suspect]
     Active Substance: RIVASTIGMINE
     Indication: Memory impairment
  2. DILTIAZEM [Concomitant]
     Active Substance: DILTIAZEM

REACTIONS (3)
  - Nausea [Unknown]
  - Dizziness [Unknown]
  - Ventricular extrasystoles [Unknown]
